FAERS Safety Report 10097172 (Version 2)
Quarter: 2014Q2

REPORT INFORMATION
  Report Type: Report from Study
  Country: US (occurrence: US)
  Receive Date: 20140422
  Receipt Date: 20140422
  Transmission Date: 20141212
  Serious: Yes (Other)
  Sender: FDA-Public Use
  Company Number: US-OTSUKA-US-2012-11477

PATIENT
  Age: 41 Year
  Sex: Male

DRUGS (15)
  1. OPC-41061 [Suspect]
     Indication: CONGENITAL CYSTIC KIDNEY DISEASE
     Dosage: 60 MG MILLIGRAM(S), DAILY DOSE
     Route: 048
     Dates: start: 20120329, end: 20120909
  2. BENAZEPRIL [Concomitant]
     Indication: HYPERTENSION
     Dosage: 40 MG MILLIGRAM(S), DAILY DOSE
     Route: 048
     Dates: start: 20051223
  3. ZYRTEC [Concomitant]
     Indication: CHRONIC SINUSITIS
     Dosage: 10 MG MILLIGRAM(S), DAILY DOSE
     Route: 048
     Dates: start: 20081203
  4. MUCINEX DM [Concomitant]
     Indication: SINUSITIS
     Dosage: 1200 MG MILLIGRAM(S), UNK
     Route: 048
     Dates: start: 200511
  5. MUCINEX DM [Concomitant]
     Indication: NASOPHARYNGITIS
  6. TYLENOL COLD (NIGHTTIME) [Concomitant]
     Indication: NASOPHARYNGITIS
     Dosage: 500 MG MILLIGRAM(S), UNK
     Route: 048
     Dates: start: 20051213
  7. TYLENOL COLD (NIGHTTIME) [Concomitant]
     Indication: SINUSITIS
  8. TAVIST [Concomitant]
     Indication: NASOPHARYNGITIS
     Dosage: 8 MG MILLIGRAM(S), UNK
     Route: 048
     Dates: start: 20051213
  9. TYLENOL EXTENDED RELIEF [Concomitant]
     Indication: PAIN
     Dosage: 500 MG MILLIGRAM(S), UNK
     Route: 048
     Dates: start: 1990
  10. TYLENOL EXTENDED RELIEF [Concomitant]
     Indication: PYREXIA
  11. NORVASC [Concomitant]
     Indication: HYPERTENSION
     Dosage: 10 MG MILLIGRAM(S), DAILY DOSE
     Route: 048
     Dates: start: 20110330
  12. ULORIC [Concomitant]
     Indication: GOUT
     Dosage: 40 MG MILLIGRAM(S), DAILY DOSE
     Route: 048
     Dates: start: 20110728
  13. PRILOSEC [Concomitant]
     Indication: GASTROOESOPHAGEAL REFLUX DISEASE
     Dosage: 40 MG MILLIGRAM(S), DAILY DOSE
     Route: 048
     Dates: start: 20110715
  14. HYDROCODONE [Concomitant]
     Indication: PAIN
     Dosage: 7.5 MG MILLIGRAM(S), UNK
     Route: 048
     Dates: start: 20111119
  15. OXYCODONE [Concomitant]
     Indication: PAIN
     Dosage: 1.0 MG MILLIGRAM(S), UNK
     Route: 048
     Dates: start: 20111016

REACTIONS (1)
  - Blood creatinine increased [Recovered/Resolved with Sequelae]
